FAERS Safety Report 8791171 (Version 1)
Quarter: 2012Q4

REPORT INFORMATION
  Report Type: Spontaneous
  Country: US (occurrence: None)
  Receive Date: 20120907
  Receipt Date: 20120907
  Transmission Date: 20130627
  Serious: No
  Sender: FDA-Public Use
  Company Number: DSA_59359_2012

PATIENT
  Sex: Female

DRUGS (1)
  1. XENAZINE 12.5 MG (NOT SPECIFIED) [Suspect]
     Dosage: 7 tablets once daily Oral to not continuing
     Route: 048
     Dates: start: 2009

REACTIONS (1)
  - Death [None]
